FAERS Safety Report 14094616 (Version 4)
Quarter: 2018Q1

REPORT INFORMATION
  Report Type: Spontaneous
  Country: BR (occurrence: BR)
  Receive Date: 20171016
  Receipt Date: 20180104
  Transmission Date: 20180508
  Serious: Yes (Other)
  Sender: FDA-Public Use
  Company Number: BR-ALEXION PHARMACEUTICALS INC.-A201711342

PATIENT
  Age: 43 Year
  Sex: Male

DRUGS (4)
  1. SOLIRIS [Suspect]
     Active Substance: ECULIZUMAB
     Indication: PAROXYSMAL NOCTURNAL HAEMOGLOBINURIA
     Dosage: UNK, UNK
     Route: 065
     Dates: start: 20161121
  2. SOLIRIS [Suspect]
     Active Substance: ECULIZUMAB
     Dosage: 900 MG, Q2W
     Route: 065
  3. SOLIRIS [Suspect]
     Active Substance: ECULIZUMAB
     Dosage: 600 MG, FOR 4 WEEKS
     Route: 042
     Dates: start: 20161121, end: 20161212
  4. SOLIRIS [Suspect]
     Active Substance: ECULIZUMAB
     Dosage: 900 MG, EVERY 14 DAYS
     Route: 042
     Dates: start: 20161226

REACTIONS (16)
  - Chromaturia [Unknown]
  - Condition aggravated [Unknown]
  - Malaise [Unknown]
  - Mood altered [Unknown]
  - Mean cell haemoglobin concentration decreased [Unknown]
  - Anxiety [Unknown]
  - Pallor [Unknown]
  - Abdominal pain [Unknown]
  - Jaundice [Unknown]
  - Haemoglobin decreased [Unknown]
  - Red blood cell count decreased [Unknown]
  - Haemorrhage [Unknown]
  - Red cell distribution width increased [Unknown]
  - Helplessness [Unknown]
  - Haematocrit decreased [Unknown]
  - Depression [Unknown]

NARRATIVE: CASE EVENT DATE: 20171003
